FAERS Safety Report 16195211 (Version 1)
Quarter: 2019Q2

REPORT INFORMATION
  Report Type: Spontaneous
  Country: US (occurrence: US)
  Receive Date: 20190415
  Receipt Date: 20190415
  Transmission Date: 20190711
  Serious: Yes (Other)
  Sender: FDA-Public Use
  Company Number: US-CIPLA LTD.-2019US01883

PATIENT

DRUGS (20)
  1. IRINOTECAN [Suspect]
     Active Substance: IRINOTECAN
     Indication: RECTAL CANCER METASTATIC
     Dosage: UNK, FOLFIRI
     Route: 065
  2. OXALIPLATIN. [Suspect]
     Active Substance: OXALIPLATIN
     Indication: RECTAL CANCER METASTATIC
     Dosage: UNK, FLOFOX
     Route: 065
  3. LEUCOVORIN                         /00566701/ [Suspect]
     Active Substance: LEUCOVORIN
     Dosage: UNK, FOLFIRI
     Route: 065
  4. 5 FU [Suspect]
     Active Substance: FLUOROURACIL
     Indication: RECTAL CANCER METASTATIC
     Dosage: UNK, FOLFOX
     Route: 065
  5. 5 FU [Suspect]
     Active Substance: FLUOROURACIL
     Dosage: UNK, FOLFIRI
     Route: 065
  6. 5 FU [Suspect]
     Active Substance: FLUOROURACIL
     Dosage: 2400 MILLIGRAM/SQ. METER, LAST CYCLE
     Route: 065
  7. BEVACIZUMAB. [Suspect]
     Active Substance: BEVACIZUMAB
     Dosage: UNK, ALONG WITH FOLFIRI
     Route: 065
  8. NAVELBINE [Suspect]
     Active Substance: VINORELBINE TARTRATE
     Indication: RECTAL CANCER METASTATIC
     Dosage: UNK
     Route: 065
  9. GEMCITABINE [Suspect]
     Active Substance: GEMCITABINE\GEMCITABINE HYDROCHLORIDE
     Indication: RECTAL CANCER METASTATIC
     Dosage: UNK
     Route: 065
  10. BEVACIZUMAB. [Suspect]
     Active Substance: BEVACIZUMAB
     Indication: RECTAL CANCER METASTATIC
     Dosage: UNK, ALONG WITH FOLFOX
     Route: 065
  11. 5 FU [Suspect]
     Active Substance: FLUOROURACIL
     Dosage: 2400 MILLIGRAM/SQ. METER, CYCLE 1
     Route: 065
  12. BEVACIZUMAB. [Suspect]
     Active Substance: BEVACIZUMAB
     Dosage: UNK
     Route: 065
  13. ZALTRAP [Suspect]
     Active Substance: ZIV-AFLIBERCEPT
     Dosage: 4 MILLIGRAM/KILOGRAM, LAST CYCLE
     Route: 065
  14. IRINOTECAN [Suspect]
     Active Substance: IRINOTECAN
     Dosage: 180 MILLIGRAM/SQ. METER, CYCLE 1
     Route: 065
  15. OXALIPLATIN. [Suspect]
     Active Substance: OXALIPLATIN
     Dosage: UNK
     Route: 065
  16. LEUCOVORIN                         /00566701/ [Suspect]
     Active Substance: LEUCOVORIN
     Indication: RECTAL CANCER METASTATIC
     Dosage: UNK, FOLFOX
     Route: 065
  17. LEUCOVORIN                         /00566701/ [Suspect]
     Active Substance: LEUCOVORIN
     Dosage: UNK, ZFOLFIRI
     Route: 065
  18. TAMOXIFEN [Suspect]
     Active Substance: TAMOXIFEN
     Indication: RECTAL CANCER METASTATIC
     Dosage: UNK
     Route: 065
  19. IRINOTECAN [Suspect]
     Active Substance: IRINOTECAN
     Dosage: 180 MILLIGRAM/SQ. METER, LAST CYCLE
     Route: 065
  20. ZALTRAP [Suspect]
     Active Substance: ZIV-AFLIBERCEPT
     Indication: RECTAL CANCER METASTATIC
     Dosage: 4 MILLIGRAM/KILOGRAM, CYCLE 1
     Route: 065

REACTIONS (2)
  - Malignant neoplasm progression [Unknown]
  - Fatigue [Unknown]
